FAERS Safety Report 5942677-5 (Version None)
Quarter: 2008Q4

REPORT INFORMATION
  Report Type: 
  Country: None (occurrence: None)
  Receive Date: 20081106
  Receipt Date: 20081029
  Transmission Date: 20090506
  Serious: Yes (Hospitalization)
  Sender: FDA-Public Use
  Company Number: IE-RANBAXY-2008RR-18964

PATIENT
  Age: 56 Year
  Sex: Female

DRUGS (8)
  1. NIMESULIDE [Suspect]
     Dosage: UNK
  2. GABAPENTIN [Suspect]
  3. AMITRIPTYLINE HCL [Suspect]
  4. TRAMADOL HCL [Suspect]
  5. BENDROFLUMETHIAZINE [Suspect]
  6. AMLODIPINE [Suspect]
  7. PAROXETINE HCL [Suspect]
  8. LEVOTHYROXINE SODIUM [Suspect]

REACTIONS (1)
  - HEPATIC FAILURE [None]
